FAERS Safety Report 13905145 (Version 3)
Quarter: 2017Q4

REPORT INFORMATION
  Report Type: Spontaneous
  Country: JP (occurrence: JP)
  Receive Date: 20170825
  Receipt Date: 20171011
  Transmission Date: 20180320
  Serious: Yes (Hospitalization)
  Sender: FDA-Public Use
  Company Number: JP-ABBVIE-17K-087-2082805-00

PATIENT
  Age: 25 Year
  Sex: Male
  Weight: 56.8 kg

DRUGS (12)
  1. HUMIRA [Suspect]
     Active Substance: ADALIMUMAB
     Route: 058
     Dates: start: 20170403, end: 20170403
  2. MESALAZINE [Concomitant]
     Active Substance: MESALAMINE
     Indication: CROHN^S DISEASE
     Route: 048
     Dates: start: 201509
  3. PREDONINE [Concomitant]
     Active Substance: PREDNISOLONE
     Dates: start: 20170314
  4. PREDONINE [Concomitant]
     Active Substance: PREDNISOLONE
     Dates: start: 20170321
  5. PREDONINE [Concomitant]
     Active Substance: PREDNISOLONE
     Indication: CROHN^S DISEASE
     Route: 048
     Dates: start: 20170227
  6. HUMIRA [Suspect]
     Active Substance: ADALIMUMAB
     Route: 058
     Dates: start: 20170417
  7. HUMIRA [Suspect]
     Active Substance: ADALIMUMAB
     Indication: CROHN^S DISEASE
     Route: 058
     Dates: start: 20170321, end: 20170321
  8. ELENTAL [Concomitant]
     Active Substance: AMINO ACIDS\CARBOHYDRATES\MINERALS\SOYBEAN OIL\VITAMINS
     Indication: CROHN^S DISEASE
     Dates: start: 201509
  9. ELENTAL [Concomitant]
     Active Substance: AMINO ACIDS\CARBOHYDRATES\MINERALS\SOYBEAN OIL\VITAMINS
     Route: 048
     Dates: start: 20170417
  10. PREDONINE [Concomitant]
     Active Substance: PREDNISOLONE
     Dates: start: 20170404, end: 20170418
  11. AZATHIOPRINE. [Concomitant]
     Active Substance: AZATHIOPRINE
     Indication: CROHN^S DISEASE
     Dates: start: 20170227
  12. AZATHIOPRINE. [Concomitant]
     Active Substance: AZATHIOPRINE
     Dates: start: 20170418, end: 20170704

REACTIONS (3)
  - Schizophrenia [Recovering/Resolving]
  - Limb injury [Unknown]
  - Joint injury [Unknown]

NARRATIVE: CASE EVENT DATE: 20170712
